FAERS Safety Report 8336009-5 (Version None)
Quarter: 2012Q2

REPORT INFORMATION
  Report Type: 
  Country: None (occurrence: None)
  Receive Date: 20120501
  Receipt Date: 20120501
  Transmission Date: 20120825
  Serious: No
  Sender: FDA-Public Use
  Company Number: None

PATIENT
  Age: 58 Year
  Sex: Male
  Weight: 63.5 kg

DRUGS (1)
  1. ARIPIPRAZOLE [Suspect]
     Indication: POST-TRAUMATIC STRESS DISORDER
     Dosage: 10 MG AM PO
     Route: 048
     Dates: start: 20120420, end: 20120427

REACTIONS (8)
  - ARTHRALGIA [None]
  - RHABDOMYOLYSIS [None]
  - ABDOMINAL PAIN LOWER [None]
  - HYPOTENSION [None]
  - DECREASED APPETITE [None]
  - SEDATION [None]
  - CHILLS [None]
  - NAUSEA [None]
